FAERS Safety Report 8564480-2 (Version None)
Quarter: 2012Q3

REPORT INFORMATION
  Report Type: 
  Country: None (occurrence: None)
  Receive Date: 20120803
  Receipt Date: 20120730
  Transmission Date: 20120928
  Serious: Yes (Hospitalization, Other)
  Sender: FDA-Public Use
  Company Number: IT-PFIZER INC-2012186386

PATIENT
  Age: 76 Year
  Sex: Female

DRUGS (7)
  1. ALDACTONE [Concomitant]
     Dosage: UNK
  2. SEREPRILE [Suspect]
     Indication: SENILE PSYCHOSIS
     Dosage: 2 DF, DAILY
     Route: 048
     Dates: start: 20120628, end: 20120723
  3. RIFAXIMIN [Concomitant]
     Dosage: UNK
  4. ALPRAZOLAM [Suspect]
     Dosage: 0.25 MG, DAILY
     Route: 048
     Dates: start: 20120718, end: 20120723
  5. LASIX [Concomitant]
     Dosage: UNK
  6. NEXIUM [Concomitant]
     Dosage: UNK
  7. KONAKION [Concomitant]
     Dosage: UNK

REACTIONS (5)
  - DRUG SCREEN POSITIVE [None]
  - HEART RATE INCREASED [None]
  - DRUG ABUSE [None]
  - COMA [None]
  - SOPOR [None]
